FAERS Safety Report 7918496-7 (Version None)
Quarter: 2011Q4

REPORT INFORMATION
  Report Type: 
  Country: None (occurrence: None)
  Receive Date: 20111116
  Receipt Date: 20110915
  Transmission Date: 20120403
  Serious: No
  Sender: FDA-Public Use
  Company Number: US-COVIDIEN/TYCO HEALTHCARE/MALLINCKRODT-T201101908

PATIENT
  Sex: Female
  Weight: 58.957 kg

DRUGS (12)
  1. CALCIUM CARBONATE [Concomitant]
     Dosage: UNK
  2. VITAMIN C                          /00008001/ [Concomitant]
  3. FENTANYL-100 [Suspect]
     Indication: BACK PAIN
     Dosage: 50 UG/HR, EVERY 3 DAYS
     Route: 062
     Dates: start: 20110101
  4. VITAMIN A                          /00056001/ [Concomitant]
  5. MOBIC [Concomitant]
     Indication: ARTHRITIS
     Dosage: UNK
  6. FISH OIL [Concomitant]
     Dosage: UNK
  7. CARBIDOPA [Concomitant]
     Indication: RESTLESS LEGS SYNDROME
     Dosage: UNK
  8. VITAMIN D [Concomitant]
     Dosage: UNK
  9. GLUCOSAMINE [Concomitant]
     Dosage: UNK
  10. DEXILANT [Concomitant]
     Indication: HIATUS HERNIA
     Dosage: UNK
  11. ASPIRIN [Concomitant]
     Dosage: UNK
  12. VITAMIN E                          /00110501/ [Concomitant]
     Dosage: UNK

REACTIONS (1)
  - HOT FLUSH [None]
